FAERS Safety Report 16171992 (Version 1)
Quarter: 2019Q2

REPORT INFORMATION
  Report Type: Spontaneous
  Country: GB (occurrence: GB)
  Receive Date: 20190409
  Receipt Date: 20190409
  Transmission Date: 20190711
  Serious: Yes (Life-Threatening, Hospitalization, Disabling, Other)
  Sender: FDA-Public Use
  Company Number: GB-AUROBINDO-AUR-APL-2019-018086

PATIENT

DRUGS (1)
  1. AZITHROMYCIN 500 MG [Suspect]
     Active Substance: AZITHROMYCIN ANHYDROUS
     Indication: CHLAMYDIA TEST POSITIVE
     Dosage: UNK (2), DAILY
     Route: 048
     Dates: start: 20190228

REACTIONS (2)
  - Suicide attempt [Unknown]
  - Psychotic disorder [Not Recovered/Not Resolved]

NARRATIVE: CASE EVENT DATE: 20190301
